FAERS Safety Report 24808366 (Version 1)
Quarter: 2025Q1

REPORT INFORMATION
  Report Type: Spontaneous
  Country: US (occurrence: US)
  Receive Date: 20250106
  Receipt Date: 20250106
  Transmission Date: 20250408
  Serious: No
  Sender: Unknown Manufacturer
  Company Number: US-STALCOR-2024-AER-02298

PATIENT
  Age: 20 Year
  Sex: Male

DRUGS (1)
  1. ORALAIR [Suspect]
     Active Substance: ANTHOXANTHUM ODORATUM POLLEN\DACTYLIS GLOMERATA POLLEN\LOLIUM PERENNE POLLEN\PHLEUM PRATENSE POLLEN\
     Indication: Product used for unknown indication
     Dosage: PLACE ONE TABLET UNDER TONGUE DAILY. ADMINISTER FIRST DOSE AT NEXT ENT APPOINTMENT PRIOR TO STARTING
     Route: 060
     Dates: start: 20240806

REACTIONS (2)
  - Tongue discomfort [Unknown]
  - Tongue oedema [Unknown]
